FAERS Safety Report 14491988 (Version 3)
Quarter: 2018Q2

REPORT INFORMATION
  Report Type: Spontaneous
  Country: US (occurrence: US)
  Receive Date: 20180206
  Receipt Date: 20180625
  Transmission Date: 20180711
  Serious: No
  Sender: FDA-Public Use
  Company Number: US-PFIZER INC-2018052837

PATIENT
  Age: 83 Year
  Sex: Male

DRUGS (1)
  1. XELJANZ XR [Suspect]
     Active Substance: TOFACITINIB CITRATE
     Dosage: 11 MG, UNK

REACTIONS (7)
  - Swelling [Unknown]
  - Diarrhoea [Unknown]
  - Malaise [Unknown]
  - Blister [Unknown]
  - Vision blurred [Unknown]
  - Irritability [Unknown]
  - Fluid retention [Unknown]
